FAERS Safety Report 5098721-3 (Version None)
Quarter: 2006Q3

REPORT INFORMATION
  Report Type: 
  Country: None (occurrence: None)
  Receive Date: 20060907
  Receipt Date: 20060824
  Transmission Date: 20061208
  Serious: Yes (Hospitalization)
  Sender: FDA-Public Use
  Company Number: US-AMGEN-US191042

PATIENT
  Sex: Female
  Weight: 41 kg

DRUGS (9)
  1. EPOGEN [Suspect]
     Indication: DIALYSIS
     Dates: start: 20060101
  2. LIPITOR [Concomitant]
  3. COUMADIN [Concomitant]
  4. TRICOR [Concomitant]
  5. CALCITRIOL [Concomitant]
  6. POTASSIUM [Concomitant]
  7. RENALTABS [Concomitant]
  8. ASPIRIN [Concomitant]
  9. MORPHINE [Concomitant]

REACTIONS (4)
  - BACK PAIN [None]
  - DIARRHOEA [None]
  - NAUSEA [None]
  - VOMITING [None]
